FAERS Safety Report 16054553 (Version 3)
Quarter: 2019Q4

REPORT INFORMATION
  Report Type: Spontaneous
  Country: US (occurrence: US)
  Receive Date: 20190309
  Receipt Date: 20191029
  Transmission Date: 20200122
  Serious: Yes (Hospitalization, Other)
  Sender: FDA-Public Use
  Company Number: US-ASTRAZENECA-2019SE11048

PATIENT
  Age: 21910 Day
  Sex: Female
  Weight: 81.8 kg

DRUGS (26)
  1. ONDANSETRON [Concomitant]
     Active Substance: ONDANSETRON
  2. AMLODIPINE [Concomitant]
     Active Substance: AMLODIPINE BESYLATE
  3. CYPROHEPTADINE. [Concomitant]
     Active Substance: CYPROHEPTADINE
  4. METOCLOPRAMIDE. [Concomitant]
     Active Substance: METOCLOPRAMIDE
  5. VITAMIN D [Concomitant]
     Active Substance: VITAMIN D NOS
  6. HYDROCODONE [Concomitant]
     Active Substance: HYDROCODONE
  7. NEXIUM [Suspect]
     Active Substance: ESOMEPRAZOLE MAGNESIUM
     Route: 048
     Dates: end: 2015
  8. METAXALONE. [Concomitant]
     Active Substance: METAXALONE
  9. COREG [Concomitant]
     Active Substance: CARVEDILOL
  10. CLARITIN [Concomitant]
     Active Substance: LORATADINE
  11. VENTOLIN [Concomitant]
     Active Substance: ALBUTEROL SULFATE
  12. DEXILANT [Suspect]
     Active Substance: DEXLANSOPRAZOLE
     Route: 065
     Dates: end: 2015
  13. LOSARTAN. [Concomitant]
     Active Substance: LOSARTAN
  14. SPIRONOLACTONE. [Concomitant]
     Active Substance: SPIRONOLACTONE
  15. ISOSORBIDE. [Concomitant]
     Active Substance: ISOSORBIDE
  16. TIZANIDINE. [Concomitant]
     Active Substance: TIZANIDINE
  17. TRADJENTA [Concomitant]
     Active Substance: LINAGLIPTIN
  18. DEXILANT [Suspect]
     Active Substance: DEXLANSOPRAZOLE
     Dosage: 60.0MG UNKNOWN
     Route: 048
     Dates: start: 20120411
  19. ZANAFLEX [Concomitant]
     Active Substance: TIZANIDINE HYDROCHLORIDE
  20. DEXILANT [Suspect]
     Active Substance: DEXLANSOPRAZOLE
     Dosage: UNKNOWN
     Route: 048
     Dates: start: 20130929
  21. VIIBRYD [Concomitant]
     Active Substance: VILAZODONE HYDROCHLORIDE
  22. OXYCODONE [Concomitant]
     Active Substance: OXYCODONE
  23. FUROSEMIDE. [Concomitant]
     Active Substance: FUROSEMIDE
  24. LIDOCAINE. [Concomitant]
     Active Substance: LIDOCAINE
  25. CALCITRIOL. [Concomitant]
     Active Substance: CALCITRIOL
  26. RENVELA [Concomitant]
     Active Substance: SEVELAMER CARBONATE

REACTIONS (6)
  - Rebound acid hypersecretion [Unknown]
  - End stage renal disease [Unknown]
  - Renal failure [Unknown]
  - Chronic kidney disease [Unknown]
  - Nephrogenic anaemia [Unknown]
  - Acute kidney injury [Unknown]

NARRATIVE: CASE EVENT DATE: 20160319
